FAERS Safety Report 11247028 (Version 2)
Quarter: 2015Q3

REPORT INFORMATION
  Report Type: Spontaneous
  Country: AU (occurrence: AU)
  Receive Date: 20150708
  Receipt Date: 20150820
  Transmission Date: 20151125
  Serious: Yes (Life-Threatening, Other)
  Sender: FDA-Public Use
  Company Number: AU-SA-2015SA096676

PATIENT
  Age: 50 Year
  Sex: Female
  Weight: 75 kg

DRUGS (17)
  1. STEMETIL [Concomitant]
     Active Substance: PROCHLORPERAZINE MALEATE
     Dosage: 1 TID PRN
     Route: 048
  2. THYROXINE SODIUM [Concomitant]
     Active Substance: LEVOTHYROXINE SODIUM
     Dosage: 1 TAB EVERY MORNING, AS DIRECTED
     Route: 048
  3. LEMTRADA [Suspect]
     Active Substance: ALEMTUZUMAB
     Indication: MULTIPLE SCLEROSIS
     Dosage: YEARLY
     Route: 042
     Dates: start: 20150518, end: 20150523
  4. ENDONE [Concomitant]
     Active Substance: OXYCODONE HYDROCHLORIDE
     Route: 048
  5. LEXAPRO [Concomitant]
     Active Substance: ESCITALOPRAM OXALATE
     Dosage: 2 TAB EVERY MORNING, AS DIRECTED
     Route: 048
  6. PREMARIN [Concomitant]
     Active Substance: ESTROGENS, CONJUGATED
     Route: 048
  7. VENTOLIN [Concomitant]
     Active Substance: ALBUTEROL SULFATE
     Dosage: Q4H, PRN
     Route: 055
  8. LASIX [Concomitant]
     Active Substance: FUROSEMIDE
     Dosage: EVERY MORNING, AS DIRECTED
     Route: 048
  9. LYRICA [Concomitant]
     Active Substance: PREGABALIN
     Dosage: 1 CAPSULE EVERY MORNING, AS DIRECTED
     Route: 048
  10. MOGADON [Concomitant]
     Active Substance: NITRAZEPAM
     Dosage: 5 MG, 2 TAB NIGHTLY WEEKLY
     Route: 048
  11. MORPHINE SULFATE. [Concomitant]
     Active Substance: MORPHINE SULFATE
     Route: 030
  12. MERSYNDOL FORTE [Concomitant]
     Dosage: 450 MG/30 MG/ 2 TABS BD PRN
     Route: 048
  13. PANADEINE FORTE [Concomitant]
     Active Substance: ACETAMINOPHEN\CODEINE PHOSPHATE
     Dosage: 500 MG/30 MG 2 TAB TID PRN
     Route: 048
  14. VALIUM [Concomitant]
     Active Substance: DIAZEPAM
     Dosage: 1 TAB BD PRN
     Route: 048
  15. LIPITOR [Concomitant]
     Active Substance: ATORVASTATIN CALCIUM
     Dosage: 1 TAB EVERY NIGHT, AS DIRECTED
     Route: 048
  16. OXYCONTIN [Concomitant]
     Active Substance: OXYCODONE HYDROCHLORIDE
     Dosage: 1 BD EVERY MORNING, AS DIRECTED
     Route: 048
  17. SOMAC [Concomitant]
     Active Substance: PANTOPRAZOLE SODIUM
     Dosage: 1 DAILY EVERY MORNING, AS DIRECTED
     Route: 048

REACTIONS (2)
  - Neutropenia [Recovering/Resolving]
  - Lymphopenia [Recovering/Resolving]

NARRATIVE: CASE EVENT DATE: 2015
